FAERS Safety Report 11171969 (Version 1)
Quarter: 2015Q2

REPORT INFORMATION
  Report Type: Spontaneous
  Country: US (occurrence: US)
  Receive Date: 20150608
  Receipt Date: 20150608
  Transmission Date: 20150821
  Serious: No
  Sender: FDA-Public Use
  Company Number: US-TARO-2015TAR00235

PATIENT
  Age: 4 Year
  Sex: Male

DRUGS (2)
  1. CETIRIZINE HCL [Suspect]
     Active Substance: CETIRIZINE HYDROCHLORIDE
     Dosage: 1 TSP, ONCE
     Dates: start: 20150317, end: 20150317
  2. CETIRIZINE HCL [Suspect]
     Active Substance: CETIRIZINE HYDROCHLORIDE
     Indication: RHINORRHOEA
     Dosage: 1 TSP, ONCE
     Dates: start: 20150316, end: 20150316

REACTIONS (2)
  - Accidental overdose [Recovered/Resolved]
  - Drug ineffective [Not Recovered/Not Resolved]

NARRATIVE: CASE EVENT DATE: 20150317
